FAERS Safety Report 8192088-X (Version None)
Quarter: 2012Q1

REPORT INFORMATION
  Report Type: 
  Country: None (occurrence: None)
  Receive Date: 20120307
  Receipt Date: 20120302
  Transmission Date: 20120608
  Serious: Yes (Other)
  Sender: FDA-Public Use
  Company Number: US-PFIZER INC-2012057097

PATIENT
  Sex: Male
  Weight: 65.76 kg

DRUGS (3)
  1. COCAINE HYDROCHLORIDE [Suspect]
     Dosage: UNK
     Dates: start: 20100101
  2. IBUPROFEN [Concomitant]
     Indication: PAIN
     Dosage: 100 MG, EVERY 8 HOURS
     Dates: start: 20100101
  3. VIAGRA [Suspect]
     Indication: ERECTILE DYSFUNCTION
     Dosage: 125 MG, DAILY
     Route: 054
     Dates: start: 20110302

REACTIONS (5)
  - GASTRIC ULCER [None]
  - HEPATIC NEOPLASM MALIGNANT [None]
  - SEXUAL DYSFUNCTION [None]
  - INCORRECT ROUTE OF DRUG ADMINISTRATION [None]
  - LIVER INJURY [None]
